FAERS Safety Report 18673274 (Version 1)
Quarter: 2020Q4

REPORT INFORMATION
  Report Type: Other
  Country: CA (occurrence: CA)
  Receive Date: 20201229
  Receipt Date: 20201229
  Transmission Date: 20210114
  Serious: Yes (Death, Life-Threatening, Hospitalization, Other)
  Sender: FDA-Public Use
  Company Number: CA-CELLTRION INC.-2020CA034525

PATIENT

DRUGS (25)
  1. CITALOPRAM [Concomitant]
     Active Substance: CITALOPRAM HYDROBROMIDE
     Dosage: 25 MG, 1 EVERY 1 DAY
     Route: 065
  2. LORAZEPAM. [Concomitant]
     Active Substance: LORAZEPAM
     Dosage: 0.5 MG
     Route: 065
  3. MYCOPHENOLATE MOFETIL. [Concomitant]
     Active Substance: MYCOPHENOLATE MOFETIL
     Indication: SKIN CANCER
     Route: 065
  4. PANTOPRAZOLE [Concomitant]
     Active Substance: PANTOPRAZOLE
     Dosage: 40 MG, 1 EVERY 1 DAY
     Route: 065
  5. TRAZODONE [Concomitant]
     Active Substance: TRAZODONE HYDROCHLORIDE
     Dosage: 50 MG
     Route: 065
  6. CYCLOPHOSPHAMIDE. [Suspect]
     Active Substance: CYCLOPHOSPHAMIDE
     Indication: PRODUCT USED FOR UNKNOWN INDICATION
     Route: 042
  7. METFORMIN [Suspect]
     Active Substance: METFORMIN HYDROCHLORIDE
     Indication: PRODUCT USED FOR UNKNOWN INDICATION
     Route: 065
  8. DIPHENHYDRAMINE HYDROCHLORIDE. [Concomitant]
     Active Substance: DIPHENHYDRAMINE HYDROCHLORIDE
     Indication: PREMEDICATION
     Dosage: 50 MG
     Route: 048
  9. FENTANYL. [Concomitant]
     Active Substance: FENTANYL
     Dosage: 25 MICROGRAM
     Route: 065
  10. VITAMIN B12 [COBAMAMIDE] [Concomitant]
     Dosage: 1000 MICROGRAM, 1 EVERY 1 DAY
     Route: 065
  11. ACETYLSALICYLIC ACID [Concomitant]
     Active Substance: ASPIRIN
     Dosage: 81 MG
     Route: 065
  12. FUROSEMIDE. [Concomitant]
     Active Substance: FUROSEMIDE
     Dosage: 80 MG, 1 EVERY 1 DAY
     Route: 065
  13. RITUXIMAB (UNKNOWN) [Suspect]
     Active Substance: RITUXIMAB
     Indication: GRANULOMATOSIS WITH POLYANGIITIS
     Dosage: 1000 MG
     Route: 042
  14. ACETAMINOPHEN. [Concomitant]
     Active Substance: ACETAMINOPHEN
     Dosage: 650 MG
     Route: 048
  15. DOXAZOSIN [Concomitant]
     Active Substance: DOXAZOSIN MESYLATE
     Dosage: 2 MG
     Route: 065
  16. CYCLOPHOSPHAMIDE. [Suspect]
     Active Substance: CYCLOPHOSPHAMIDE
     Indication: PRODUCT USED FOR UNKNOWN INDICATION
     Route: 048
  17. LEFLUNOMIDE. [Concomitant]
     Active Substance: LEFLUNOMIDE
  18. POTASSIUM CHLORIDE. [Concomitant]
     Active Substance: POTASSIUM CHLORIDE
     Dosage: 600 MG, 2 EVERY 1 DAY
     Route: 065
  19. CLOPIDOGREL [Concomitant]
     Active Substance: CLOPIDOGREL BISULFATE
     Route: 065
  20. MYCOPHENOLATE SODIUM [Concomitant]
     Active Substance: MYCOPHENOLATE SODIUM
     Dosage: 360 MG, 3 EVERY 1 DAY
     Route: 065
  21. METHOTREXATE. [Suspect]
     Active Substance: METHOTREXATE
     Indication: PRODUCT USED FOR UNKNOWN INDICATION
     Route: 065
  22. PREDNISONE. [Concomitant]
     Active Substance: PREDNISONE
     Dosage: 9 MG, 1 EVERY 1 DAY
     Route: 065
  23. ROSUVASTATIN. [Concomitant]
     Active Substance: ROSUVASTATIN
     Dosage: 20 MG, 1 EVERY 1 DAY
  24. METHYLPREDNISOLONE. [Concomitant]
     Active Substance: METHYLPREDNISOLONE
     Dosage: 125 MG
     Route: 042
  25. ONDANSETRON [Concomitant]
     Active Substance: ONDANSETRON
     Dosage: 8 MG
     Route: 065

REACTIONS (37)
  - Blood creatinine increased [Fatal]
  - C-reactive protein increased [Fatal]
  - Granulomatosis with polyangiitis [Fatal]
  - Malignant melanoma in situ [Fatal]
  - Neoplasm [Fatal]
  - Acne [Fatal]
  - Arthralgia [Fatal]
  - Back pain [Fatal]
  - Dyspnoea [Fatal]
  - Neutropenia [Fatal]
  - Hypoaesthesia [Fatal]
  - Joint stiffness [Fatal]
  - Neutrophil count decreased [Fatal]
  - Pulmonary granuloma [Fatal]
  - Weight decreased [Fatal]
  - Rash [Fatal]
  - Gout [Fatal]
  - Fatigue [Fatal]
  - Antineutrophil cytoplasmic antibody positive [Fatal]
  - Proteinuria [Fatal]
  - Steroid diabetes [Fatal]
  - Radiculopathy [Fatal]
  - Weight increased [Fatal]
  - Nausea [Fatal]
  - Palpitations [Fatal]
  - Alveolitis [Fatal]
  - Arteriosclerosis [Fatal]
  - Death [Fatal]
  - Pneumonia [Fatal]
  - Pyrexia [Fatal]
  - Intervertebral disc protrusion [Fatal]
  - Disease recurrence [Fatal]
  - Drug hypersensitivity [Fatal]
  - Interstitial lung disease [Fatal]
  - Dizziness [Fatal]
  - Nasopharyngitis [Fatal]
  - Vomiting [Fatal]
